FAERS Safety Report 6772592-9 (Version None)
Quarter: 2010Q2

REPORT INFORMATION
  Report Type: 
  Country: None (occurrence: None)
  Receive Date: 20100616
  Receipt Date: 20091210
  Transmission Date: 20101027
  Serious: No
  Sender: FDA-Public Use
  Company Number: US-ASTRAZENECA-2009SE31155

PATIENT
  Age: 78 Year
  Sex: Male
  Weight: 78 kg

DRUGS (1)
  1. PULMICORT FLEXIHALER [Suspect]
     Dosage: TWO PUFFS TWO TIMES A DAY
     Route: 055

REACTIONS (1)
  - BLOOD GLUCOSE INCREASED [None]
